FAERS Safety Report 14915829 (Version 4)
Quarter: 2018Q2

REPORT INFORMATION
  Report Type: Report from Study
  Country: ES (occurrence: ES)
  Receive Date: 20180518
  Receipt Date: 20180625
  Transmission Date: 20180711
  Serious: Yes (Other)
  Sender: FDA-Public Use
  Company Number: ES-GILEAD-2018-0339220

PATIENT
  Age: 66 Year
  Sex: Male

DRUGS (7)
  1. SEVELAMER [Concomitant]
     Active Substance: SEVELAMER
  2. VITAMINE D [Concomitant]
  3. TENOFOVIR DISOPROXIL FUMARATE. [Suspect]
     Active Substance: TENOFOVIR DISOPROXIL FUMARATE
     Indication: HEPATITIS B
     Dosage: UNK
     Route: 065
     Dates: start: 2009, end: 2016
  4. PROPRANOLOL [Concomitant]
     Active Substance: PROPRANOLOL HYDROCHLORIDE
  5. NIFEDIPINE (II) [Concomitant]
  6. INSULIN [Concomitant]
     Active Substance: INSULIN NOS
  7. ENALAPRIL                          /00574902/ [Concomitant]
     Active Substance: ENALAPRIL

REACTIONS (2)
  - Renal injury [Unknown]
  - Renal failure [Unknown]
